FAERS Safety Report 7811576-6 (Version None)
Quarter: 2011Q4

REPORT INFORMATION
  Report Type: 
  Country: None (occurrence: None)
  Receive Date: 20111013
  Receipt Date: 20111011
  Transmission Date: 20120403
  Serious: Yes (Other)
  Sender: FDA-Public Use
  Company Number: JP-PFIZER INC-2011089136

PATIENT
  Age: 28 Year
  Sex: Female

DRUGS (1)
  1. CABERGOLINE [Suspect]
     Indication: LACTATION PUERPERAL INCREASED
     Dosage: 1 MG, 1X/DAY
     Route: 048
     Dates: start: 20110421

REACTIONS (3)
  - MASTITIS [None]
  - FATIGUE [None]
  - ANAPHYLACTIC SHOCK [None]
